FAERS Safety Report 7295279-5 (Version None)
Quarter: 2011Q1

REPORT INFORMATION
  Report Type: 
  Country: None (occurrence: None)
  Receive Date: 20110203
  Receipt Date: 20110118
  Transmission Date: 20110831
  Serious: Yes (Death)
  Sender: FDA-Public Use
  Company Number: B0695029A

PATIENT
  Age: 34 Year
  Sex: Female

DRUGS (8)
  1. ACE INHIBITOR (FORMULATION UNKNOWN) (GENERIC) (ACE INHIBITOR) [Suspect]
     Dosage: ORAL
     Route: 048
  2. LAMOTRIGINE [Suspect]
     Dosage: ORAL
     Route: 048
  3. QUETIAPINE [Suspect]
     Dosage: ORAL
     Route: 048
  4. DULOXETINE (FORMULATION UNKNOWN)S(GENERIC) (DULOXETINE) [Suspect]
     Dosage: ORAL
     Route: 048
  5. DIURETIC (FARMULATION'UNKNOWN)	(GENERI) (DIURETIC) [Suspect]
     Dosage: ORAL
     Route: 048
  6. MUSCLE RELAXANT (FORMULATION UNKNOWN) (GENERIC) (MUSCLE RELAXANT) [Suspect]
     Dosage: ORAL
     Route: 048
  7. LORAZEPAM [Suspect]
     Dosage: ORAL
     Route: 048
  8. ANTICONVULSANT (FORMULATION UNKNOWN) (GENERIC) (ANTICONVULSANT) [Suspect]
     Dosage: ORAL
     Route: 048

REACTIONS (1)
  - COMPLETED SUICIDE [None]
